FAERS Safety Report 18616066 (Version 1)
Quarter: 2020Q4

REPORT INFORMATION
  Report Type: Report from Study
  Country: US (occurrence: US)
  Receive Date: 20201214
  Receipt Date: 20201214
  Transmission Date: 20210114
  Serious: Yes (Life-Threatening, Hospitalization, Disabling)
  Sender: FDA-Public Use
  Company Number: NVSC2020US294617

PATIENT
  Age: 3 Year
  Sex: Female
  Weight: 16.3 kg

DRUGS (2)
  1. GSK1120212 [Suspect]
     Active Substance: TRAMETINIB
     Dosage: 7.6 ML, QD
     Route: 065
     Dates: start: 20201025, end: 20201203
  2. GSK1120212 [Suspect]
     Active Substance: TRAMETINIB
     Indication: METASTATIC MALIGNANT MELANOMA
     Dosage: 7.6 ML, QD
     Route: 065
     Dates: start: 20200917, end: 20201023

REACTIONS (4)
  - Hypovolaemic shock [Recovering/Resolving]
  - Anaemia [Recovered/Resolved with Sequelae]
  - Hypotension [Recovering/Resolving]
  - Haemorrhage [Not Recovered/Not Resolved]

NARRATIVE: CASE EVENT DATE: 20201023
